FAERS Safety Report 5869344-0 (Version None)
Quarter: 2008Q3

REPORT INFORMATION
  Report Type: 
  Country: None (occurrence: None)
  Receive Date: 20080828
  Receipt Date: 20080815
  Transmission Date: 20090109
  Serious: Yes (Death)
  Sender: FDA-Public Use
  Company Number: 20056

PATIENT
  Age: 66 Year
  Sex: Male

DRUGS (17)
  1. CARBOPLATIN [Suspect]
     Indication: LUNG NEOPLASM MALIGNANT
     Dosage: 1 DF IV
     Route: 042
     Dates: start: 20080513, end: 20080513
  2. GEMZAR [Suspect]
     Indication: LUNG NEOPLASM MALIGNANT
     Dosage: 1 DF IV
     Route: 042
     Dates: start: 20080513, end: 20080520
  3. SPIRIVA. MFR: NOT SPECIFIED DATES: , UNKNOWN [Concomitant]
  4. SERETIDE DISKUS /01420901/ DATES: , UNKNOWN [Concomitant]
  5. FUROSEMID. MFR. NOT SPECIFIED DATES: , UNKNOWN [Concomitant]
  6. APRESOLIN DATES: , UNKNOWN [Concomitant]
  7. BETAPRED DATES: , UNKNOWN [Concomitant]
  8. ZOCORD. MFR: NOT SPECIFIED DATES: , UNKNOWN [Concomitant]
  9. ALVEDON DATES: , UNKNOWN [Concomitant]
  10. OXASCAND DATES: , UNKNOWN [Concomitant]
  11. VENTOLINE /00139501/ DATES: , UNKNOWN [Concomitant]
  12. TROMBYL DATES: , UNKNOWN [Concomitant]
  13. CALCICHEW-D3 DATES: [Concomitant]
  14. ATACAND /01349502/ . MFR: NOT SPCEIFIED DATES: TO [Concomitant]
  15. NOVOMIX /01475801/ DATES: , UNKNOWN [Concomitant]
  16. OXYCONTIN [Concomitant]
  17. ACETYLCYSTEINE [Concomitant]

REACTIONS (4)
  - BLOOD CULTURE POSITIVE [None]
  - ESCHERICHIA INFECTION [None]
  - NEUTROPENIA [None]
  - SEPSIS [None]
